FAERS Safety Report 7753790-4 (Version None)
Quarter: 2011Q3

REPORT INFORMATION
  Report Type: 
  Country: None (occurrence: None)
  Receive Date: 20110915
  Receipt Date: 20110913
  Transmission Date: 20111222
  Serious: No
  Sender: FDA-Public Use
  Company Number: US-PFIZER INC-2011216900

PATIENT
  Age: 82 Year
  Sex: Female
  Weight: 52.608 kg

DRUGS (1)
  1. ADVIL LIQUI-GELS [Suspect]
     Indication: PAIN
     Dosage: 200 MG, AS NEEDED
     Route: 048
     Dates: start: 20110909, end: 20110909

REACTIONS (5)
  - EAR DISCOMFORT [None]
  - NASAL CONGESTION [None]
  - TENSION HEADACHE [None]
  - PAIN [None]
  - HEARING IMPAIRED [None]
